FAERS Safety Report 14112464 (Version 1)
Quarter: 2017Q4

REPORT INFORMATION
  Report Type: Spontaneous
  Country: US (occurrence: US)
  Receive Date: 20171020
  Receipt Date: 20171020
  Transmission Date: 20180321
  Serious: No
  Sender: FDA-Public Use
  Company Number: US-009507513-1710USA001227

PATIENT
  Sex: Female

DRUGS (2)
  1. DULERA [Suspect]
     Active Substance: FORMOTEROL FUMARATE DIHYDRATE\MOMETASONE FUROATE
     Indication: CHRONIC OBSTRUCTIVE PULMONARY DISEASE
     Dosage: 2 PUFFS TWICE DAILY
     Route: 055
     Dates: start: 2013
  2. FELODIPINE. [Concomitant]
     Active Substance: FELODIPINE

REACTIONS (4)
  - Product quality issue [Unknown]
  - Respiration abnormal [Not Recovered/Not Resolved]
  - Drug dose omission [Unknown]
  - Irregular breathing [Not Recovered/Not Resolved]

NARRATIVE: CASE EVENT DATE: 201710
